FAERS Safety Report 19756349 (Version 1)
Quarter: 2021Q3

REPORT INFORMATION
  Report Type: Spontaneous
  Country: FR (occurrence: FR)
  Receive Date: 20210827
  Receipt Date: 20210827
  Transmission Date: 20211014
  Serious: Yes (Other)
  Sender: FDA-Public Use
  Company Number: FR-VALIDUS PHARMACEUTICALS LLC-FR-VDP-2021-000462

PATIENT
  Sex: Male
  Weight: 1.25 kg

DRUGS (12)
  1. TAZOBACTAM SODIUM AND PIPERACILLIN SODIUM [Concomitant]
     Active Substance: PIPERACILLIN SODIUM\TAZOBACTAM SODIUM
     Indication: SEPSIS NEONATAL
     Dosage: UNK
     Route: 065
  2. FUROSEMIDE. [Suspect]
     Active Substance: FUROSEMIDE
     Indication: SEPSIS NEONATAL
     Dosage: 10 MG/ML(9TH DAY OF LIFE;5AM?12PM?8PM)
     Route: 042
  3. CAFFEINE. [Suspect]
     Active Substance: CAFFEINE
     Indication: SEPSIS NEONATAL
     Dosage: 2.5 MG/ML(9TH DAY OF LIFE,12 PM)
     Route: 042
  4. VANCOMYCIN [Suspect]
     Active Substance: VANCOMYCIN
     Indication: ANTIBIOTIC THERAPY
     Dosage: 5 MG/ML(8TH DAY OF LIFE ,10PM)
     Route: 042
  5. FUROSEMIDE. [Suspect]
     Active Substance: FUROSEMIDE
     Dosage: 10 MG/ML(10TH DAY OF LIFE,2PM?6PM?10PM)
     Route: 042
  6. CAFFEINE. [Suspect]
     Active Substance: CAFFEINE
     Dosage: 2.5 MG/ML(10TH DAY OF LIFE,12 PM)
     Route: 042
  7. FUROSEMIDE. [Suspect]
     Active Substance: FUROSEMIDE
     Dosage: 10 MG/ML(11TH DAY OF LIFE, 2AM)
     Route: 042
  8. INSULIN [Concomitant]
     Active Substance: INSULIN NOS
     Indication: DIABETES MELLITUS
     Dosage: UNK
     Route: 065
  9. VANCOMYCIN [Suspect]
     Active Substance: VANCOMYCIN
     Indication: SEPSIS NEONATAL
  10. ACETAMINOPHEN. [Concomitant]
     Active Substance: ACETAMINOPHEN
     Indication: SEPSIS NEONATAL
     Dosage: UNK
     Route: 065
  11. HYDROCORTISONE HEMISUCCINATE [Concomitant]
     Active Substance: HYDROCORTISONE HEMISUCCINATE
     Indication: SEPSIS NEONATAL
     Dosage: UNK
     Route: 065
  12. VANCOMYCIN [Suspect]
     Active Substance: VANCOMYCIN
     Indication: BACTERAEMIA
     Dosage: UNK(6TH DAY OF LIFE)
     Route: 042

REACTIONS (5)
  - Skin lesion [Recovering/Resolving]
  - Injection site necrosis [Recovering/Resolving]
  - Haemodynamic instability [Unknown]
  - Endothelial dysfunction [Recovering/Resolving]
  - Lactic acidosis [Unknown]
